FAERS Safety Report 10744639 (Version 1)
Quarter: 2015Q1

REPORT INFORMATION
  Report Type: Spontaneous
  Country: US (occurrence: None)
  Receive Date: 20150126
  Receipt Date: 20150126
  Transmission Date: 20150721
  Serious: No
  Sender: FDA-Public Use
  Company Number: None

PATIENT
  Age: 63 Year
  Sex: Female
  Weight: 98.88 kg

DRUGS (12)
  1. CISPLATIN. [Suspect]
     Active Substance: CISPLATIN
     Dates: start: 20140909
  2. PERCOCET [Concomitant]
     Active Substance: ACETAMINOPHEN\OXYCODONE HYDROCHLORIDE
  3. TAXOL [Suspect]
     Active Substance: PACLITAXEL
     Dates: start: 20141231
  4. NEULASTA [Suspect]
     Active Substance: PEGFILGRASTIM
     Dates: start: 20141204
  5. CYMBALTA [Concomitant]
     Active Substance: DULOXETINE HYDROCHLORIDE
  6. PHENERGAN [Concomitant]
     Active Substance: PROMETHAZINE HYDROCHLORIDE
  7. HYZAAR [Concomitant]
     Active Substance: HYDROCHLOROTHIAZIDE\LOSARTAN POTASSIUM
  8. CARBOPLATIN. [Suspect]
     Active Substance: CARBOPLATIN
     Dates: start: 20141231
  9. GLYCOLAX [Concomitant]
     Active Substance: POLYETHYLENE GLYCOL 3350
  10. ZOCOR [Concomitant]
     Active Substance: SIMVASTATIN
  11. COMPAZINE [Concomitant]
     Active Substance: PROCHLORPERAZINE MALEATE
  12. ZOFRAN-ODT [Concomitant]

REACTIONS (3)
  - White blood cell count decreased [None]
  - Bone pain [None]
  - Neutrophil count decreased [None]

NARRATIVE: CASE EVENT DATE: 20150112
